FAERS Safety Report 4439416-6 (Version None)
Quarter: 2004Q3

REPORT INFORMATION
  Report Type: 
  Country: None (occurrence: None)
  Receive Date: 20040728
  Receipt Date: 20040303
  Transmission Date: 20050211
  Serious: No
  Sender: FDA-Public Use
  Company Number: USA040360837

PATIENT
  Age: 9 Year
  Sex: Female
  Weight: 23 kg

DRUGS (2)
  1. STRATTERA [Suspect]
     Indication: ATTENTION DEFICIT/HYPERACTIVITY DISORDER
     Dosage: 25 MG DAY
     Dates: start: 20030501
  2. ANTIBIOTICS [Concomitant]

REACTIONS (5)
  - ABNORMAL BEHAVIOUR [None]
  - AGGRESSION [None]
  - ENERGY INCREASED [None]
  - IMPULSIVE BEHAVIOUR [None]
  - PHARYNGITIS STREPTOCOCCAL [None]
